FAERS Safety Report 9576113 (Version 1)
Quarter: 2013Q4

REPORT INFORMATION
  Report Type: Spontaneous
  Country: US (occurrence: US)
  Receive Date: 20131001
  Receipt Date: 20131001
  Transmission Date: 20140711
  Serious: No
  Sender: FDA-Public Use
  Company Number: US-AMGEN-USASP2013001173

PATIENT
  Age: 52 Year
  Sex: Female
  Weight: 72.56 kg

DRUGS (8)
  1. ENBREL [Suspect]
     Indication: PRODUCT USED FOR UNKNOWN INDICATION
     Dosage: 50 MG, QWK
     Route: 058
  2. CELEBREX [Concomitant]
     Dosage: 50 MG, UNK
  3. LEVOTHYROXIN [Concomitant]
     Dosage: 150 MUG, UNK
  4. MULTIVITAMINS, PLAIN [Concomitant]
     Dosage: UNK
  5. FOLIC ACID [Concomitant]
     Dosage: UNK
  6. AMBIEN [Concomitant]
     Dosage: 5 MG, UNK
  7. METHOTREXATE [Concomitant]
     Dosage: UNK
  8. PREDNISONE [Concomitant]
     Dosage: 20 MG, UNK

REACTIONS (4)
  - Condition aggravated [Recovered/Resolved]
  - Rheumatoid arthritis [Recovering/Resolving]
  - Allergy to animal [Recovering/Resolving]
  - Skin bacterial infection [Recovering/Resolving]
